FAERS Safety Report 4381795-2 (Version None)
Quarter: 2004Q2

REPORT INFORMATION
  Report Type: 
  Country: None (occurrence: None)
  Receive Date: 20040615
  Receipt Date: 20040603
  Transmission Date: 20050107
  Serious: Yes (Other)
  Sender: FDA-Public Use
  Company Number: AR-JNJFOC-20040302956

PATIENT
  Age: 39 Year
  Sex: Female

DRUGS (2)
  1. ORTHO EVRA [Suspect]
     Indication: CONTRACEPTION
     Dosage: 1 DOSE (S), 3 IN 4 WEEK, TRANSDERMAL
     Route: 062
     Dates: start: 20040120, end: 20040226
  2. SIDERBLUT (UNSPECIFIED) FERROUS SULFATE [Concomitant]

REACTIONS (7)
  - ENDOMETRIAL HYPERPLASIA [None]
  - FALLOPIAN TUBE NEOPLASM [None]
  - HAEMATOCRIT DECREASED [None]
  - HAEMOGLOBIN DECREASED [None]
  - MENORRHAGIA [None]
  - METRORRHAGIA [None]
  - UTERINE LEIOMYOMA [None]
